FAERS Safety Report 16205599 (Version 1)
Quarter: 2019Q2

REPORT INFORMATION
  Report Type: Spontaneous
  Country: IT (occurrence: IT)
  Receive Date: 20190417
  Receipt Date: 20190417
  Transmission Date: 20190711
  Serious: Yes (Other)
  Sender: FDA-Public Use
  Company Number: IT-DRREDDYS-GER/ITL/19/0109505

PATIENT
  Age: 31 Year
  Sex: Female

DRUGS (2)
  1. RIVOTRIL [Concomitant]
     Active Substance: CLONAZEPAM
     Indication: PRODUCT USED FOR UNKNOWN INDICATION
  2. IBUPROFEN. [Suspect]
     Active Substance: IBUPROFEN
     Indication: MUSCULOSKELETAL PAIN
     Dates: start: 20190224, end: 20190224

REACTIONS (2)
  - Vomiting [Recovering/Resolving]
  - Suffocation feeling [Recovering/Resolving]

NARRATIVE: CASE EVENT DATE: 20190224
